FAERS Safety Report 8123318-8 (Version None)
Quarter: 2012Q1

REPORT INFORMATION
  Report Type: 
  Country: None (occurrence: None)
  Receive Date: 20120208
  Receipt Date: 20120207
  Transmission Date: 20120608
  Serious: Yes (Other)
  Sender: FDA-Public Use
  Company Number: US-ROCHE-792664

PATIENT
  Sex: Female
  Weight: 45.4 kg

DRUGS (2)
  1. ACCUTANE [Suspect]
     Indication: ACNE
     Route: 065
     Dates: start: 19910101, end: 19911231
  2. BIRTH CONTROL PILLS NOS [Concomitant]

REACTIONS (6)
  - ALOPECIA [None]
  - INFLAMMATORY BOWEL DISEASE [None]
  - APPENDICITIS PERFORATED [None]
  - GALLBLADDER DISORDER [None]
  - IRRITABLE BOWEL SYNDROME [None]
  - DRY EYE [None]
